FAERS Safety Report 4532776-7 (Version None)
Quarter: 2004Q4

REPORT INFORMATION
  Report Type: 
  Country: None (occurrence: None)
  Receive Date: 20041220
  Receipt Date: 20041220
  Transmission Date: 20050328
  Serious: Yes (Other)
  Sender: FDA-Public Use
  Company Number: None

PATIENT
  Sex: Female
  Weight: 92.9874 kg

DRUGS (2)
  1. EFFEXOR XR [Suspect]
     Indication: GENERALISED ANXIETY DISORDER
     Dosage: 75 MG 3 X DAILY ORAL
     Route: 048
     Dates: start: 19990101, end: 20041219
  2. EFFEXOR XR [Suspect]
     Indication: PANIC DISORDER
     Dosage: 75 MG 3 X DAILY ORAL
     Route: 048
     Dates: start: 19990101, end: 20041219

REACTIONS (8)
  - DEPRESSION [None]
  - DRUG WITHDRAWAL SYNDROME [None]
  - DYSPNOEA [None]
  - INSOMNIA [None]
  - NIGHT SWEATS [None]
  - TEMPERATURE INTOLERANCE [None]
  - TINNITUS [None]
  - VERTIGO [None]
